FAERS Safety Report 4434244-X (Version None)
Quarter: 2004Q3

REPORT INFORMATION
  Report Type: 
  Country: None (occurrence: None)
  Receive Date: 20040726
  Receipt Date: 20040416
  Transmission Date: 20050211
  Serious: No
  Sender: FDA-Public Use
  Company Number: USA040157583

PATIENT
  Age: 81 Year
  Sex: Female

DRUGS (7)
  1. FORTEO [Suspect]
     Indication: OSTEOPOROSIS
     Dates: start: 20030601
  2. LOVASTATIN [Concomitant]
  3. SYNTHROID [Concomitant]
  4. NEXIUM [Concomitant]
  5. LASIX [Concomitant]
  6. MULTI-VITAMIN [Concomitant]
  7. IMDUR [Concomitant]

REACTIONS (9)
  - BACTERIURIA [None]
  - BLOOD URINE [None]
  - CALCULUS BLADDER [None]
  - CONSTIPATION [None]
  - GENITAL PRURITUS FEMALE [None]
  - HYPERTENSION [None]
  - INSOMNIA [None]
  - VAGINAL BURNING SENSATION [None]
  - WHITE BLOOD CELLS URINE [None]
